FAERS Safety Report 21468439 (Version 1)
Quarter: 2022Q4

REPORT INFORMATION
  Report Type: Spontaneous
  Country: US (occurrence: None)
  Receive Date: 20221015
  Receipt Date: 20221015
  Transmission Date: 20230113
  Serious: Yes (Hospitalization)
  Sender: FDA-Public Use
  Company Number: None

PATIENT
  Sex: Male
  Weight: 164 kg

DRUGS (3)
  1. CISPLATIN [Suspect]
     Active Substance: CISPLATIN
     Dates: end: 20220917
  2. GEMCITABINE HYDROCHLORIDE [Suspect]
     Active Substance: GEMCITABINE HYDROCHLORIDE
     Dates: end: 20220916
  3. NEULASTA [Suspect]
     Active Substance: PEGFILGRASTIM
     Dates: end: 20220917

REACTIONS (7)
  - Loss of consciousness [None]
  - Hyperhidrosis [None]
  - Feeling hot [None]
  - Fall [None]
  - Hypotension [None]
  - Infection [None]
  - White blood cell count increased [None]

NARRATIVE: CASE EVENT DATE: 20220926
